FAERS Safety Report 23910851 (Version 1)
Quarter: 2024Q2

REPORT INFORMATION
  Report Type: Spontaneous
  Country: US (occurrence: US)
  Receive Date: 20240528
  Receipt Date: 20240528
  Transmission Date: 20240716
  Serious: No
  Sender: FDA-Public Use
  Company Number: US-AVADEL CNS PHARMACEUTICALS, LLC-2024AVA00497

PATIENT
  Sex: Female

DRUGS (5)
  1. LUMRYZ [Suspect]
     Active Substance: SODIUM OXYBATE
     Indication: Narcolepsy
     Dosage: 6 G, ONCE NIGHTLY
     Dates: start: 20240124
  2. LITHIUM [Concomitant]
     Active Substance: LITHIUM
     Dosage: 300 MG, ONCE DAILY
  3. LAMOTRIGINE [Concomitant]
     Active Substance: LAMOTRIGINE
     Dosage: 100 MG, ONCE DAILY
  4. MODAFINIL [Concomitant]
     Active Substance: MODAFINIL
     Dosage: 200 MG, TWICE DAILY
  5. METHYLPHENIDATE [Concomitant]
     Active Substance: METHYLPHENIDATE
     Dosage: 20 MG, TWICE DAILY

REACTIONS (3)
  - Middle insomnia [Recovering/Resolving]
  - Musculoskeletal disorder [Not Recovered/Not Resolved]
  - Pain in extremity [Recovering/Resolving]

NARRATIVE: CASE EVENT DATE: 20240101
